FAERS Safety Report 20159401 (Version 3)
Quarter: 2022Q1

REPORT INFORMATION
  Report Type: Other
  Country: AT (occurrence: AT)
  Receive Date: 20211208
  Receipt Date: 20220126
  Transmission Date: 20220424
  Serious: Yes (Other)
  Sender: FDA-Public Use
  Company Number: AT-CELLTRION INC.-2021AT016317

PATIENT

DRUGS (4)
  1. RITUXIMAB [Suspect]
     Active Substance: RITUXIMAB
     Indication: Diffuse large B-cell lymphoma
     Dosage: 2 RCHOP CYCLES (1ST LINE OF TREATMENT)
     Route: 065
     Dates: start: 20201201, end: 20210101
  2. RITUXIMAB [Suspect]
     Active Substance: RITUXIMAB
     Dosage: 2ND LINE OF TREATMENT
     Route: 065
     Dates: start: 20210201, end: 20210301
  3. POLATUZUMAB VEDOTIN [Suspect]
     Active Substance: POLATUZUMAB VEDOTIN
     Indication: Diffuse large B-cell lymphoma
     Dosage: THIRD LINE OF TREATMENT
     Route: 065
     Dates: start: 20210401, end: 20210430
  4. OBINUTUZUMAB [Suspect]
     Active Substance: OBINUTUZUMAB
     Indication: Diffuse large B-cell lymphoma
     Dosage: UNK
     Route: 065
     Dates: start: 20210513, end: 20210515

REACTIONS (6)
  - Lymphoma [Unknown]
  - Disease recurrence [Unknown]
  - Pneumonia [Recovered/Resolved]
  - Off label use [Unknown]
  - Frustration tolerance decreased [Unknown]
  - Depression [Unknown]

NARRATIVE: CASE EVENT DATE: 20210930
